FAERS Safety Report 8579600-3 (Version None)
Quarter: 2012Q3

REPORT INFORMATION
  Report Type: 
  Country: None (occurrence: None)
  Receive Date: 20120808
  Receipt Date: 20120730
  Transmission Date: 20120928
  Serious: Yes (Death, Other)
  Sender: FDA-Public Use
  Company Number: US-JNJFOC-20100907811

PATIENT
  Sex: Female
  Weight: 66.68 kg

DRUGS (1)
  1. ORTHO EVRA [Suspect]
     Indication: CONTRACEPTION
     Route: 062

REACTIONS (3)
  - PULMONARY EMBOLISM [None]
  - INCORRECT ROUTE OF DRUG ADMINISTRATION [None]
  - CARDIAC ARREST [None]
